FAERS Safety Report 5874072-1 (Version None)
Quarter: 2008Q3

REPORT INFORMATION
  Report Type: 
  Country: None (occurrence: None)
  Receive Date: 20080829
  Receipt Date: 20080221
  Transmission Date: 20090109
  Serious: Yes (Other)
  Sender: FDA-Public Use
  Company Number: 2008S1011871

PATIENT
  Age: 71 Year
  Sex: Male

DRUGS (30)
  1. CLARITHROMYCIN [Suspect]
     Indication: LOWER RESPIRATORY TRACT INFECTION
     Dosage: 500 MG; DAILY
     Dates: start: 20080131, end: 20080205
  2. AMLODIPINE (AMLODIPINE) (CON.) [Concomitant]
  3. AMOXICILLIN (AMOXICILLIN) (CON.) [Concomitant]
  4. ATENOLOL (ATENOLOL) (CON.) [Concomitant]
  5. BENDROFLUMETHIAZIDE (BENDROFLUMETHIAZIDE) (CON.) [Concomitant]
  6. CINNARIZINE (CINNARIZINE) (CON.) [Concomitant]
  7. CIPROFLOXACIN (CIPROFLOXACIN) (CON.) [Concomitant]
  8. CLOPIDOGREL (CLOPIDOGREL) (CON. [Concomitant]
  9. CO-AMOXICLAV (AMOXICILLIN W/CLAVULANATE POTASSIUM) (CON.) [Concomitant]
  10. DAKTACORT /00449501/ (DAKTACORT DICLOFENAC SODIUM (DICLOFENAC SODIUM) [Concomitant]
  11. DIHYDROCODEINE BITARTRATE (DIHYDROCODEINE BITARTRATE) (CON.) [Concomitant]
  12. DIPROBASE /01007601/ (PARAFFIN) (CON.) [Concomitant]
  13. FLUTICASONE PROPIONATE (FLUTICASONE PROPIONATE) (CON.) [Concomitant]
  14. FOLIC ACID (FOLIC ACID) (CON.) [Concomitant]
  15. HYDROXYCHLOROQUINE SULFATE (HYDROXYCHLOROQUINE SULFATE) (CON.) [Concomitant]
  16. LOSARTAN POTASSIUM (LOSARTAN POTASSIUM) (CON.) [Concomitant]
  17. METHOTREXATE (METHOTREXATE) (CON.) [Concomitant]
  18. NOVICOL /01053601/ (NULTYTELY NICOTINELL /01033301/ (NICOTINE) (CON.) [Concomitant]
  19. NICOTINELL /01033301/ (NICOTINE) (CON.) [Concomitant]
  20. OTOMIZE (OTOMIZE) (CON.) [Concomitant]
  21. OTOSPORIN (OTOSPORIN) (CON.) [Concomitant]
  22. OXERUTINS (TROXERUTIN) (CON.) [Concomitant]
  23. PROCHLORPERAZINE (PROCHLORPERAZINE) (CON.) [Concomitant]
  24. SALBUTAMOL (SALBUTAMOL) (CON.) [Concomitant]
  25. SIMVASTATIN (SIMVASTATIN) (CON.) [Concomitant]
  26. PROCTOSEDYL [Concomitant]
  27. SODIUM AUROTHIOMALATE (SODIUM AUROTHIOMALATE) (CON.) [Concomitant]
  28. SUDOCREM (SUDOCREM) (CON.) [Concomitant]
  29. TRAMADOL HYDROCHLORIDE (TRAMADOL HYDROCHLORIDE) (CON.) [Concomitant]
  30. TRIMOVATE /00456501/ (TRIMOVATE CO-AMOXICLAV (AMOXICILLIN W/CLAVULANAT [Concomitant]

REACTIONS (3)
  - COLD SWEAT [None]
  - DIZZINESS [None]
  - ORTHOSTATIC HYPOTENSION [None]
